FAERS Safety Report 9848528 (Version 1)
Quarter: 2014Q1

REPORT INFORMATION
  Report Type: Spontaneous
  Country: US (occurrence: None)
  Receive Date: 20140127
  Receipt Date: 20140127
  Transmission Date: 20141002
  Serious: Yes (Disabling)
  Sender: FDA-Public Use
  Company Number: None

PATIENT
  Sex: Female

DRUGS (1)
  1. MIRENA [Suspect]
     Indication: CONTRACEPTION
     Dates: start: 200606, end: 201001

REACTIONS (8)
  - Headache [None]
  - Dizziness [None]
  - Sinusitis [None]
  - Anaemia [None]
  - Benign intracranial hypertension [None]
  - Drug ineffective [None]
  - Sleep disorder [None]
  - Tinnitus [None]
